FAERS Safety Report 18126554 (Version 1)
Quarter: 2020Q3

REPORT INFORMATION
  Report Type: Spontaneous
  Country: CA (occurrence: CA)
  Receive Date: 20200808
  Receipt Date: 20200808
  Transmission Date: 20201103
  Serious: Yes (Hospitalization)
  Sender: FDA-Public Use
  Company Number: CA-TEVA-2020-CA-1811190

PATIENT
  Sex: Female

DRUGS (13)
  1. BISOPROLOL [Concomitant]
     Active Substance: BISOPROLOL
  2. HUMIRA [Suspect]
     Active Substance: ADALIMUMAB
     Indication: RHEUMATOID ARTHRITIS
     Route: 058
  3. XELJANZ [Suspect]
     Active Substance: TOFACITINIB CITRATE
     Indication: RHEUMATOID ARTHRITIS
     Dosage: 10 MILLIGRAM DAILY;
     Route: 048
  4. METHOTREXATE. [Suspect]
     Active Substance: METHOTREXATE
     Indication: PRODUCT USED FOR UNKNOWN INDICATION
     Route: 058
  5. MIRTAZAPINE. [Concomitant]
     Active Substance: MIRTAZAPINE
  6. PANTOLOC[PANTOPRAZOLE] [Concomitant]
  7. CANNABIS SATIVA [Concomitant]
     Active Substance: CANNABIS SATIVA FLOWERING TOP
     Indication: PAIN
  8. ELIQUIS [Concomitant]
     Active Substance: APIXABAN
  9. DIGOXIN. [Concomitant]
     Active Substance: DIGOXIN
  10. DULOXETINE. [Concomitant]
     Active Substance: DULOXETINE
  11. SYNTHROID [Concomitant]
     Active Substance: LEVOTHYROXINE SODIUM
  12. ZOPICLONE [Concomitant]
     Active Substance: ZOPICLONE
  13. PREDNISONE. [Concomitant]
     Active Substance: PREDNISONE
     Dosage: 5 MILLIGRAM DAILY;

REACTIONS (8)
  - Confusional state [Unknown]
  - Dehydration [Unknown]
  - Anxiety [Unknown]
  - Arthralgia [Unknown]
  - Memory impairment [Unknown]
  - Clostridium difficile infection [Unknown]
  - Infection [Unknown]
  - Depression [Unknown]
